FAERS Safety Report 5125664-9 (Version None)
Quarter: 2006Q4

REPORT INFORMATION
  Report Type: 
  Country: None (occurrence: None)
  Receive Date: 20061006
  Receipt Date: 20060830
  Transmission Date: 20070319
  Serious: Yes (Other)
  Sender: FDA-Public Use
  Company Number: 2006-07-0572

PATIENT
  Age: 66 Year
  Sex: Male
  Weight: 102.0593 kg

DRUGS (12)
  1. TEMODAR [Suspect]
     Indication: ANAPLASTIC ASTROCYTOMA
     Dosage: 450 MG; QM; PO
     Route: 048
     Dates: start: 20050510, end: 20050706
  2. PREDNISONE TAB [Concomitant]
  3. ZANTAC [Concomitant]
  4. ALLEGRA [Concomitant]
  5. COMPAZINE [Concomitant]
  6. TEGRETOL [Concomitant]
  7. COMPAZINE [Concomitant]
  8. TEGRETOL [Concomitant]
  9. MINOCIN [Concomitant]
  10. LEXAPRO [Concomitant]
  11. KYTRIL [Concomitant]
  12. KEPPRA [Concomitant]

REACTIONS (4)
  - CONFUSIONAL STATE [None]
  - DRUG HYPERSENSITIVITY [None]
  - THROMBOCYTOPENIA [None]
  - VASCULITIS [None]
